FAERS Safety Report 4783546-6 (Version None)
Quarter: 2005Q3

REPORT INFORMATION
  Report Type: 
  Country: None (occurrence: None)
  Receive Date: 20050928
  Receipt Date: 20050912
  Transmission Date: 20060218
  Serious: Yes (Hospitalization)
  Sender: FDA-Public Use
  Company Number: EWC050845315

PATIENT
  Sex: Female

DRUGS (5)
  1. CYMBALTA [Suspect]
     Indication: MAJOR DEPRESSION
     Dosage: 60 MG/1 DAY
     Dates: start: 20041001
  2. TOPAMAX [Concomitant]
  3. ZOLPIDEM TARTRATE [Concomitant]
  4. STILPANE [Concomitant]
  5. AMITRIPTYLINE HCL [Concomitant]

REACTIONS (1)
  - DEEP VEIN THROMBOSIS [None]
